FAERS Safety Report 21073675 (Version 10)
Quarter: 2023Q4

REPORT INFORMATION
  Report Type: Other
  Country: BE (occurrence: None)
  Receive Date: 20220713
  Receipt Date: 20231021
  Transmission Date: 20240110
  Serious: Yes (Hospitalization)
  Sender: FDA-Public Use
  Company Number: BE-ROCHE-3130904

PATIENT
  Age: 55 Year
  Sex: Female
  Weight: 69 kg

DRUGS (23)
  1. OCRELIZUMAB [Suspect]
     Active Substance: OCRELIZUMAB
     Indication: Primary progressive multiple sclerosis
     Dosage: START DATE OF MOST RECENT DOSE OF STUDY DRUG PRIOR TO AE AND SAE: 08/DEC/2021.?DOSE LAST STUDY DRUG
     Route: 042
     Dates: start: 20190918, end: 20190918
  2. OCRELIZUMAB [Suspect]
     Active Substance: OCRELIZUMAB
     Dosage: TOTAL VOLUME ADMINISTERED: 500 ML
     Route: 042
     Dates: start: 20200610, end: 20200610
  3. OCRELIZUMAB [Suspect]
     Active Substance: OCRELIZUMAB
     Dosage: TOTAL VOLUME ADMINISTERED: 500 ML
     Route: 042
     Dates: start: 20230222, end: 20230222
  4. OCRELIZUMAB [Suspect]
     Active Substance: OCRELIZUMAB
     Dosage: TOTAL VOLUME ADMINISTERED: 500 ML
     Route: 042
     Dates: start: 20201216, end: 20201216
  5. OCRELIZUMAB [Suspect]
     Active Substance: OCRELIZUMAB
     Dosage: TOTAL VOLUME ADMINISTERED: 500 ML
     Route: 042
     Dates: start: 20210609, end: 20210609
  6. OCRELIZUMAB [Suspect]
     Active Substance: OCRELIZUMAB
     Dosage: TOTAL VOLUME ADMINISTERED: 250 ML
     Route: 042
     Dates: start: 20191002, end: 20191002
  7. OCRELIZUMAB [Suspect]
     Active Substance: OCRELIZUMAB
     Dosage: TOTAL VOLUME ADMINISTERED: 500 ML
     Route: 042
     Dates: start: 20220817, end: 20220817
  8. OCRELIZUMAB [Suspect]
     Active Substance: OCRELIZUMAB
     Dosage: TOTAL VOLUME ADMINISTERED: 500 ML
     Route: 042
     Dates: start: 20211208, end: 20211208
  9. OCRELIZUMAB [Suspect]
     Active Substance: OCRELIZUMAB
     Route: 042
     Dates: start: 20230823, end: 20230823
  10. ETHINYL ESTRADIOL\GESTODENE [Concomitant]
     Active Substance: ETHINYL ESTRADIOL\GESTODENE
     Route: 048
  11. CHOLECALCIFEROL [Concomitant]
     Active Substance: CHOLECALCIFEROL
     Route: 048
     Dates: start: 202009
  12. AZITHROMYCIN [Concomitant]
     Active Substance: AZITHROMYCIN
     Indication: Diarrhoea
     Route: 048
     Dates: start: 20220627, end: 20220629
  13. IMODIUM [Concomitant]
     Active Substance: LOPERAMIDE HYDROCHLORIDE
  14. CETIRIZINE [Concomitant]
     Active Substance: CETIRIZINE HYDROCHLORIDE
     Route: 048
     Dates: start: 20220817, end: 20220817
  15. CETIRIZINE [Concomitant]
     Active Substance: CETIRIZINE HYDROCHLORIDE
     Route: 048
     Dates: start: 20230222, end: 20230222
  16. CETIRIZINE [Concomitant]
     Active Substance: CETIRIZINE HYDROCHLORIDE
     Route: 048
     Dates: start: 20230823, end: 20230823
  17. METHYLPREDNISOLONE [Concomitant]
     Active Substance: METHYLPREDNISOLONE
     Route: 042
     Dates: start: 20220817, end: 20220817
  18. METHYLPREDNISOLONE [Concomitant]
     Active Substance: METHYLPREDNISOLONE
     Route: 042
     Dates: start: 20230222, end: 20230222
  19. METHYLPREDNISOLONE [Concomitant]
     Active Substance: METHYLPREDNISOLONE
     Route: 042
     Dates: start: 20230823, end: 20230823
  20. ACETAMINOPHEN [Concomitant]
     Active Substance: ACETAMINOPHEN
     Route: 048
     Dates: start: 20220817, end: 20220817
  21. ACETAMINOPHEN [Concomitant]
     Active Substance: ACETAMINOPHEN
     Route: 048
     Dates: start: 20230222, end: 20230222
  22. ACETAMINOPHEN [Concomitant]
     Active Substance: ACETAMINOPHEN
     Route: 048
     Dates: start: 20230823, end: 20230823
  23. LOPERAMIDE [Concomitant]
     Active Substance: LOPERAMIDE
     Indication: Diarrhoea
     Route: 048
     Dates: start: 20220620, end: 20220629

REACTIONS (4)
  - Pneumonia [Recovered/Resolved]
  - COVID-19 [Recovered/Resolved]
  - Chest discomfort [Recovered/Resolved]
  - Hypoaesthesia [Not Recovered/Not Resolved]

NARRATIVE: CASE EVENT DATE: 20220601
